FAERS Safety Report 8025075-2 (Version None)
Quarter: 2012Q1

REPORT INFORMATION
  Report Type: 
  Country: None (occurrence: None)
  Receive Date: 20120105
  Receipt Date: 20111230
  Transmission Date: 20120608
  Serious: Yes (Hospitalization, Disabling, Other)
  Sender: FDA-Public Use
  Company Number: US-MERCK-0904USA00416

PATIENT
  Age: 65 Year
  Sex: Female
  Weight: 78 kg

DRUGS (7)
  1. SYNTHROID [Concomitant]
     Route: 065
     Dates: start: 19800101
  2. FOSAMAX [Suspect]
     Indication: BREAST CANCER METASTATIC
     Route: 048
     Dates: start: 19970107, end: 20000206
  3. FOSAMAX [Suspect]
     Route: 042
  4. FOSAMAX [Suspect]
     Route: 048
     Dates: start: 20000306
  5. AREDIA [Suspect]
     Indication: BREAST CANCER METASTATIC
     Route: 041
     Dates: start: 20000401, end: 20060901
  6. OXYCODONE [Concomitant]
     Indication: BREAKTHROUGH PAIN
     Route: 065
  7. LORTAB [Concomitant]
     Indication: PAIN
     Route: 048

REACTIONS (77)
  - ANXIETY [None]
  - NEUROPATHIC ARTHROPATHY [None]
  - CEREBRAL SMALL VESSEL ISCHAEMIC DISEASE [None]
  - GINGIVAL DISORDER [None]
  - FRACTURE [None]
  - RHINITIS ALLERGIC [None]
  - VARICOSE VEIN [None]
  - TOOTH FRACTURE [None]
  - PAIN [None]
  - OEDEMA MUCOSAL [None]
  - NEPHROLITHIASIS [None]
  - NECK INJURY [None]
  - LOOSE TOOTH [None]
  - DIZZINESS [None]
  - OSTEOMYELITIS [None]
  - FOOT DEFORMITY [None]
  - PERIPHERAL VASCULAR DISORDER [None]
  - PSYCHOGENIC PAIN DISORDER [None]
  - DRUG DEPENDENCE [None]
  - CELLULITIS [None]
  - HALLUCINATION [None]
  - GINGIVAL CANCER [None]
  - CONSTIPATION [None]
  - IMPAIRED HEALING [None]
  - FOOT FRACTURE [None]
  - ANKLE FRACTURE [None]
  - LACERATION [None]
  - RENAL DISORDER [None]
  - POOR DENTAL CONDITION [None]
  - SLEEP DISORDER [None]
  - PERIODONTAL DISEASE [None]
  - FISTULA [None]
  - DYSTHYMIC DISORDER [None]
  - CONTUSION [None]
  - BACK INJURY [None]
  - ACUTE SINUSITIS [None]
  - FIBULA FRACTURE [None]
  - INSOMNIA [None]
  - GINGIVITIS [None]
  - WOUND [None]
  - VOMITING [None]
  - SWELLING FACE [None]
  - SKIN ULCER [None]
  - ARTHRALGIA [None]
  - CHEST DISCOMFORT [None]
  - HORMONE LEVEL ABNORMAL [None]
  - RHEUMATOID ARTHRITIS [None]
  - OEDEMA PERIPHERAL [None]
  - TREATMENT FAILURE [None]
  - GASTROOESOPHAGEAL REFLUX DISEASE [None]
  - NAUSEA [None]
  - MAJOR DEPRESSION [None]
  - ROAD TRAFFIC ACCIDENT [None]
  - JAW DISORDER [None]
  - DEHYDRATION [None]
  - EXOSTOSIS [None]
  - ERYTHROPLASIA [None]
  - ADRENAL ADENOMA [None]
  - CHRONIC OBSTRUCTIVE PULMONARY DISEASE [None]
  - TREATMENT NONCOMPLIANCE [None]
  - TOOTH LOSS [None]
  - ORTHOSTATIC HYPOTENSION [None]
  - ASTHENIA [None]
  - OSTEONECROSIS OF JAW [None]
  - BLINDNESS [None]
  - CONFUSIONAL STATE [None]
  - ELECTROLYTE IMBALANCE [None]
  - BLOOD GLUCOSE FLUCTUATION [None]
  - DIABETES MELLITUS INADEQUATE CONTROL [None]
  - DENTAL CARIES [None]
  - BLOOD POTASSIUM DECREASED [None]
  - ORAL DISORDER [None]
  - OLIGURIA [None]
  - TRISMUS [None]
  - FALL [None]
  - EATING DISORDER [None]
  - APHTHOUS STOMATITIS [None]
